FAERS Safety Report 12689795 (Version 1)
Quarter: 2016Q3

REPORT INFORMATION
  Report Type: Spontaneous
  Country: GB (occurrence: GB)
  Receive Date: 20160826
  Receipt Date: 20160826
  Transmission Date: 20161109
  Serious: Yes (Other)
  Sender: FDA-Public Use
  Company Number: GB-TEVA-685647ACC

PATIENT
  Age: 63 Year
  Sex: Female
  Weight: 80 kg

DRUGS (17)
  1. GLICLAZIDE [Concomitant]
     Active Substance: GLICLAZIDE
     Dosage: 4 DOSAGE FORMS DAILY;
     Dates: start: 20151204, end: 20160509
  2. HUMULIN M3 [Concomitant]
     Active Substance: INSULIN HUMAN
     Dosage: 2 DOSAGE FORMS DAILY; AS DIRECTED.2 DF DAILY
     Dates: start: 20160509
  3. HYDROXOCOBALAMIN [Concomitant]
     Active Substance: HYDROXOCOBALAMIN
     Dosage: 1MG THREE TIMES A WEEK FOR 2 WEEKS THEN EVERY 3...
     Dates: start: 20160506, end: 20160603
  4. SALBUTAMOL [Concomitant]
     Active Substance: ALBUTEROL
     Route: 055
     Dates: start: 20151229
  5. DOXYCYCLINE. [Suspect]
     Active Substance: DOXYCYCLINE
     Dates: start: 20160805
  6. EMPAGLIFLOZIN [Concomitant]
     Active Substance: EMPAGLIFLOZIN
     Dosage: 1 DOSAGE FORMS DAILY;
     Dates: start: 20151223, end: 20160509
  7. GLUCOSE [Concomitant]
     Active Substance: DEXTROSE
     Dosage: USE AS DIRECTED
     Dates: start: 20160509
  8. QUINAPRIL. [Concomitant]
     Active Substance: QUINAPRIL
     Dosage: 1 DOSAGE FORMS DAILY;
     Dates: start: 20151204
  9. ANORO ELLIPTA [Concomitant]
     Active Substance: UMECLIDINIUM BROMIDE\VILANTEROL TRIFENATATE
     Dosage: 1 DOSAGE FORMS DAILY;
     Route: 055
     Dates: start: 20151223
  10. FERROUS FUMARATE [Concomitant]
     Active Substance: FERROUS FUMARATE
     Dosage: 3 DOSAGE FORMS DAILY;
     Dates: start: 20160603, end: 20160701
  11. FERROUS SULFATE. [Concomitant]
     Active Substance: FERROUS SULFATE
     Dosage: 3 DOSAGE FORMS DAILY;
     Dates: start: 20160509, end: 20160606
  12. SIMVASTATIN. [Concomitant]
     Active Substance: SIMVASTATIN
     Dosage: 1 DOSAGE FORMS DAILY; AT NIGHT, 1 DF DAILY
     Dates: start: 20151204
  13. CLARITHROMYCIN. [Concomitant]
     Active Substance: CLARITHROMYCIN
     Dosage: 2 DOSAGE FORMS DAILY;
     Dates: start: 20160805
  14. ASPIRIN. [Concomitant]
     Active Substance: ASPIRIN
     Dosage: 1 DOSAGE FORMS DAILY;
     Dates: start: 20151204
  15. BYETTA [Concomitant]
     Active Substance: EXENATIDE
     Dosage: 2 DOSAGE FORMS DAILY; UP TO ONE HOUR BEFORE FOOD, 2 DF DAILY
     Dates: start: 20151223, end: 20160509
  16. METFORMIN [Concomitant]
     Active Substance: METFORMIN HYDROCHLORIDE
     Dosage: 3 DOSAGE FORMS DAILY;
     Dates: start: 20151204
  17. OMEPRAZOLE. [Concomitant]
     Active Substance: OMEPRAZOLE
     Dosage: 1 DOSAGE FORMS DAILY;
     Dates: start: 20151204

REACTIONS (1)
  - Malaise [Recovering/Resolving]

NARRATIVE: CASE EVENT DATE: 20160805
